FAERS Safety Report 17744791 (Version 1)
Quarter: 2020Q2

REPORT INFORMATION
  Report Type: Spontaneous
  Country: US (occurrence: US)
  Receive Date: 20200504
  Receipt Date: 20200504
  Transmission Date: 20200714
  Serious: Yes (Life-Threatening)
  Sender: FDA-Public Use
  Company Number: None

PATIENT
  Age: 63 Year
  Sex: Female
  Weight: 85.5 kg

DRUGS (12)
  1. VICTOZA [Concomitant]
     Active Substance: LIRAGLUTIDE
  2. LOSARTAN. [Concomitant]
     Active Substance: LOSARTAN
  3. CGM - DEXCOM 6 [Concomitant]
  4. LANTUS [Concomitant]
     Active Substance: INSULIN GLARGINE
  5. LEVOTHYROXINE. [Concomitant]
     Active Substance: LEVOTHYROXINE
  6. TRESIBA [Concomitant]
     Active Substance: INSULIN DEGLUDEC
  7. COQ10 [Concomitant]
     Active Substance: UBIDECARENONE
  8. VITAMIN D3 [Concomitant]
     Active Substance: CHOLECALCIFEROL
  9. JUICE PLUS [Concomitant]
     Active Substance: DIETARY SUPPLEMENT
  10. METOPROLOL. [Concomitant]
     Active Substance: METOPROLOL
  11. EZETIMIBE. [Suspect]
     Active Substance: EZETIMIBE
     Indication: BLOOD TRIGLYCERIDES INCREASED
     Dosage: ?          QUANTITY:90 TABLET(S);?
     Route: 048
  12. METROPROLOL [Concomitant]
     Active Substance: METOPROLOL

REACTIONS (1)
  - Hypertensive crisis [None]

NARRATIVE: CASE EVENT DATE: 20200502
